FAERS Safety Report 23229854 (Version 1)
Quarter: 2023Q4

REPORT INFORMATION
  Report Type: Spontaneous
  Country: US (occurrence: None)
  Receive Date: 20231127
  Receipt Date: 20231127
  Transmission Date: 20240109
  Serious: No
  Sender: FDA-Public Use
  Company Number: US-ROCHE-3380473

PATIENT
  Age: 81 Year
  Sex: Female
  Weight: 68.1 kg

DRUGS (2)
  1. LUCENTIS [Suspect]
     Active Substance: RANIBIZUMAB
     Indication: Neovascular age-related macular degeneration
     Dosage: ON 27/JUN/2023, 0.5 MG RANIBIZUMAB INJECTION, INJECTION IN RIGHT EYE
     Route: 050
     Dates: start: 20230420
  2. LUCENTIS [Suspect]
     Active Substance: RANIBIZUMAB
     Dosage: INJECTION IN LEFT EYE
     Route: 050

REACTIONS (2)
  - Expired product administered [Unknown]
  - No adverse event [Unknown]

NARRATIVE: CASE EVENT DATE: 20230627
